FAERS Safety Report 12352889 (Version 1)
Quarter: 2016Q2

REPORT INFORMATION
  Report Type: Other
  Country: US (occurrence: US)
  Receive Date: 20160510
  Receipt Date: 20160510
  Transmission Date: 20160815
  Serious: Yes (Life-Threatening, Hospitalization)
  Sender: FDA-Public Use
  Company Number: US-LEHIGH_VALLEY-USA-POI0580201600096

PATIENT
  Age: 21 Year
  Sex: Male

DRUGS (5)
  1. CANNABIS [Concomitant]
     Active Substance: CANNABIS SATIVA SUBSP. INDICA TOP
  2. OXYCODONE HCL CAPSULES [Suspect]
     Active Substance: OXYCODONE HYDROCHLORIDE
     Dosage: 60 MG DAILY
  3. OXYMORPHONE [Suspect]
     Active Substance: OXYMORPHONE
     Dosage: 10 MG DAILY
  4. HEROIN [Suspect]
     Active Substance: DIACETYLMORPHINE
  5. BUPRENORPHINE W/NALOXONE [Suspect]
     Active Substance: BUPRENORPHINE HYDROCHLORIDE\NALOXONE HYDROCHLORIDE
     Route: 060

REACTIONS (9)
  - Drug abuse [Recovered/Resolved]
  - Oesophageal perforation [Recovered/Resolved]
  - Delirium [Recovered/Resolved]
  - Drug withdrawal syndrome [Recovered/Resolved]
  - Vomiting [Recovered/Resolved]
  - Rhabdomyolysis [Recovered/Resolved]
  - Pneumomediastinum [Recovered/Resolved]
  - Acute kidney injury [Recovered/Resolved]
  - Extrapyramidal disorder [Recovered/Resolved]

NARRATIVE: CASE EVENT DATE: 201508
